APPROVED DRUG PRODUCT: CALCITRIOL
Active Ingredient: CALCITRIOL
Strength: 0.001MG/ML
Dosage Form/Route: INJECTABLE;INJECTION
Application: A075823 | Product #001
Applicant: TEVA PARENTERAL MEDICINES INC
Approved: Mar 31, 2003 | RLD: No | RS: No | Type: DISCN